FAERS Safety Report 7328518-2 (Version None)
Quarter: 2011Q1

REPORT INFORMATION
  Report Type: 
  Country: None (occurrence: None)
  Receive Date: 20110224
  Receipt Date: 20110224
  Transmission Date: 20110831
  Serious: Yes (Disabling)
  Sender: FDA-Public Use
  Company Number: None

PATIENT
  Age: 64 Year
  Sex: Female
  Weight: 66.2252 kg

DRUGS (1)
  1. VENLAFAXINE HCL EXTENDED-RELEASE [Suspect]
     Indication: DEPRESSION
     Dosage: 225 MG ONCE PER DAY PO
     Route: 048
     Dates: start: 20101120, end: 20110202

REACTIONS (4)
  - CONSTIPATION [None]
  - DIARRHOEA [None]
  - PRODUCT SUBSTITUTION ISSUE [None]
  - ABDOMINAL PAIN UPPER [None]
